FAERS Safety Report 16359528 (Version 1)
Quarter: 2019Q2

REPORT INFORMATION
  Report Type: Spontaneous
  Country: BR (occurrence: BR)
  Receive Date: 20190528
  Receipt Date: 20190528
  Transmission Date: 20190711
  Serious: Yes (Other)
  Sender: FDA-Public Use
  Company Number: BR-ROCHE-2322245

PATIENT
  Sex: Female

DRUGS (2)
  1. VALIUM [Suspect]
     Active Substance: DIAZEPAM
     Indication: NERVOUS SYSTEM DISORDER
  2. VALIUM [Suspect]
     Active Substance: DIAZEPAM
     Indication: ANXIETY
     Route: 065

REACTIONS (7)
  - Uterine cyst [Unknown]
  - Uterine neoplasm [Unknown]
  - Cold sweat [Unknown]
  - Hypertension [Unknown]
  - Nervousness [Unknown]
  - Therapy cessation [Unknown]
  - Cholelithiasis [Unknown]
